FAERS Safety Report 5388367-1 (Version None)
Quarter: 2007Q3

REPORT INFORMATION
  Report Type: 
  Country: None (occurrence: None)
  Receive Date: 20070716
  Receipt Date: 20070704
  Transmission Date: 20080115
  Serious: Yes (Hospitalization)
  Sender: FDA-Public Use
  Company Number: CA-ELI_LILLY_AND_COMPANY-CA200705004775

PATIENT
  Age: 73 Year
  Sex: Female

DRUGS (8)
  1. FORTEO [Suspect]
     Indication: OSTEOPOROSIS
     Dosage: 20 UG, DAILY (1/D)
     Route: 058
     Dates: start: 20060506
  2. ACETAMINOPHEN [Concomitant]
  3. VITAMIN D [Concomitant]
  4. CALCIUM CHLORIDE [Concomitant]
     Dosage: 1000 MG, UNKNOWN
  5. IRON [Concomitant]
  6. FOLIC ACID [Concomitant]
  7. DURAGESIC-100 [Concomitant]
     Indication: PAIN
  8. OMEPRAZOLE [Concomitant]
     Dosage: UNK, 2/D

REACTIONS (7)
  - ARTHRALGIA [None]
  - ASTHENIA [None]
  - BACK PAIN [None]
  - CARDIAC DISORDER [None]
  - DIARRHOEA [None]
  - JOINT STIFFNESS [None]
  - PAIN [None]
